FAERS Safety Report 4277854-5 (Version None)
Quarter: 2004Q1

REPORT INFORMATION
  Report Type: 
  Country: None (occurrence: None)
  Receive Date: 20040121
  Receipt Date: 20031218
  Transmission Date: 20041129
  Serious: Yes (Death)
  Sender: FDA-Public Use
  Company Number: 2004-111874-NL

PATIENT
  Age: 50 Year
  Sex: Male

DRUGS (14)
  1. MIRTAZAPINE [Suspect]
     Indication: COMPLETED SUICIDE
     Dosage: MG ONCE
     Route: 048
     Dates: start: 20031205, end: 20031205
  2. MIRTAZAPINE [Suspect]
     Indication: DEPRESSION
     Dosage: MG ONCE
     Route: 048
     Dates: start: 20031205, end: 20031205
  3. MIRTAZAPINE [Suspect]
     Indication: COMPLETED SUICIDE
     Dosage: MG ONCE
     Route: 048
     Dates: start: 20031206, end: 20031206
  4. MIRTAZAPINE [Suspect]
     Indication: DEPRESSION
     Dosage: MG ONCE
     Route: 048
     Dates: start: 20031206, end: 20031206
  5. MAPROTILINE HYDROCHLORIDE [Suspect]
     Indication: COMPLETED SUICIDE
     Dosage: MG ONCE
     Route: 048
     Dates: start: 20031205, end: 20031205
  6. MAPROTILINE HYDROCHLORIDE [Suspect]
     Indication: DEPRESSION
     Dosage: MG ONCE
     Route: 048
     Dates: start: 20031205, end: 20031205
  7. MAPROTILINE HYDROCHLORIDE [Suspect]
     Indication: COMPLETED SUICIDE
     Dosage: MG ONCE
     Route: 048
     Dates: start: 20031206, end: 20031206
  8. MAPROTILINE HYDROCHLORIDE [Suspect]
     Indication: DEPRESSION
     Dosage: MG ONCE
     Route: 048
     Dates: start: 20031206, end: 20031206
  9. ALCOHOL [Suspect]
     Indication: COMPLETED SUICIDE
  10. 33062 AND PLACEBO [Concomitant]
  11. FLUOXETINE AND PLACEBO [Concomitant]
  12. ATENOLOL [Concomitant]
  13. CLONAZEPAM [Concomitant]
  14. PRAVASTATIN SODIUM [Concomitant]

REACTIONS (5)
  - ALCOHOL POISONING [None]
  - CARDIO-RESPIRATORY ARREST [None]
  - COMPLETED SUICIDE [None]
  - LOSS OF CONSCIOUSNESS [None]
  - OVERDOSE [None]
